FAERS Safety Report 9729070 (Version 5)
Quarter: 2015Q4

REPORT INFORMATION
  Report Type: Spontaneous
  Country: DK (occurrence: DK)
  Receive Date: 20131204
  Receipt Date: 20151012
  Transmission Date: 20160305
  Serious: Yes (Life-Threatening, Hospitalization, Disabling)
  Sender: FDA-Public Use
  Company Number: PHHY2011DK38430

PATIENT
  Age: 48 Year
  Sex: Female

DRUGS (1)
  1. LINDYNETTE [Suspect]
     Active Substance: ETHINYL ESTRADIOL\GESTODENE
     Indication: MENORRHAGIA
     Route: 048
     Dates: start: 20110228

REACTIONS (8)
  - Cerebral thrombosis [Recovered/Resolved with Sequelae]
  - Fall [Recovered/Resolved]
  - Speech disorder [Unknown]
  - Psychotic disorder [Unknown]
  - Hemiparesis [Unknown]
  - Neurologic neglect syndrome [Not Recovered/Not Resolved]
  - Facial asymmetry [Unknown]
  - Brain injury [Not Recovered/Not Resolved]

NARRATIVE: CASE EVENT DATE: 20110416
